FAERS Safety Report 19007415 (Version 1)
Quarter: 2021Q1

REPORT INFORMATION
  Report Type: Spontaneous
  Country: US (occurrence: US)
  Receive Date: 20210312
  Receipt Date: 20210312
  Transmission Date: 20210420
  Serious: Yes (Hospitalization)
  Sender: FDA-Public Use
  Company Number: None

PATIENT
  Age: 74 Year
  Sex: Female
  Weight: 64 kg

DRUGS (2)
  1. GEMCITABINE HYDROCHLORIDE. [Suspect]
     Active Substance: GEMCITABINE HYDROCHLORIDE
     Dates: end: 20210128
  2. CISPLATIN. [Suspect]
     Active Substance: CISPLATIN

REACTIONS (2)
  - Neutrophil count decreased [None]
  - Blood pressure fluctuation [None]

NARRATIVE: CASE EVENT DATE: 20210204
